FAERS Safety Report 12196311 (Version 1)
Quarter: 2016Q1

REPORT INFORMATION
  Report Type: Spontaneous
  Country: US (occurrence: US)
  Receive Date: 20160321
  Receipt Date: 20160321
  Transmission Date: 20160526
  Serious: Yes (Other)
  Sender: FDA-Public Use
  Company Number: US-BRISTOL-MYERS SQUIBB COMPANY-BMS-2016-020050

PATIENT
  Sex: Male
  Weight: 22.68 kg

DRUGS (2)
  1. FOCALIN                            /01611102/ [Concomitant]
     Indication: ATTENTION DEFICIT/HYPERACTIVITY DISORDER
     Dosage: UNK
     Route: 065
  2. ABILIFY [Suspect]
     Active Substance: ARIPIPRAZOLE
     Indication: PRODUCT USED FOR UNKNOWN INDICATION
     Dosage: 2 MG, QD
     Route: 065

REACTIONS (5)
  - Weight increased [Unknown]
  - Irritability [Unknown]
  - Drug dose omission [Unknown]
  - Abnormal behaviour [Unknown]
  - Drug ineffective [Unknown]
